FAERS Safety Report 23542336 (Version 1)
Quarter: 2024Q1

REPORT INFORMATION
  Report Type: Spontaneous
  Country: GB (occurrence: GB)
  Receive Date: 20240220
  Receipt Date: 20240220
  Transmission Date: 20240410
  Serious: Yes (Disabling, Other)
  Sender: FDA-Public Use
  Company Number: GB-CELLTRION INC.-2024GB003753

PATIENT

DRUGS (1)
  1. INFLIXIMAB [Suspect]
     Active Substance: INFLIXIMAB
     Indication: Crohn^s disease
     Dosage: 120 MG PRE FILLED PEN
     Route: 058
     Dates: start: 202110

REACTIONS (4)
  - Crohn^s disease [Unknown]
  - Joint stiffness [Unknown]
  - Nausea [Unknown]
  - Therapy interrupted [Unknown]
